FAERS Safety Report 17894284 (Version 1)
Quarter: 2020Q2

REPORT INFORMATION
  Report Type: Spontaneous
  Country: US (occurrence: US)
  Receive Date: 20200615
  Receipt Date: 20200615
  Transmission Date: 20200714
  Serious: No
  Sender: FDA-Public Use
  Company Number: US-009507513-2006USA003454

PATIENT
  Sex: Female
  Weight: 82.09 kg

DRUGS (1)
  1. NEXPLANON [Suspect]
     Active Substance: ETONOGESTREL
     Indication: CONTRACEPTION
     Dosage: SINGLE ROD EVERY 3 YEARS
     Route: 059
     Dates: start: 20200508

REACTIONS (5)
  - Implant site hypersensitivity [Recovering/Resolving]
  - Implant site vesicles [Recovering/Resolving]
  - Implant site induration [Recovering/Resolving]
  - Implant site pain [Recovering/Resolving]
  - Implant site erythema [Recovering/Resolving]

NARRATIVE: CASE EVENT DATE: 202005
